FAERS Safety Report 9250637 (Version 2)
Quarter: 2013Q3

REPORT INFORMATION
  Report Type: Spontaneous
  Country: US (occurrence: US)
  Receive Date: 20130424
  Receipt Date: 20130705
  Transmission Date: 20140515
  Serious: Yes (Hospitalization, Disabling, Other)
  Sender: FDA-Public Use
  Company Number: US-ASTRAZENECA-2013SE27425

PATIENT
  Age: 52 Year
  Sex: Male

DRUGS (23)
  1. NEXIUM [Suspect]
     Indication: GASTROOESOPHAGEAL REFLUX DISEASE
     Dosage: MORNING AND NIGHT
     Route: 048
  2. NEXIUM [Suspect]
     Indication: GASTRIC DISORDER
     Dosage: MORNING AND NIGHT
     Route: 048
  3. NEXIUM [Suspect]
     Indication: GASTROOESOPHAGEAL REFLUX DISEASE
     Route: 048
     Dates: start: 20070427
  4. NEXIUM [Suspect]
     Indication: GASTRIC DISORDER
     Route: 048
     Dates: start: 20070427
  5. PRILOSEC [Suspect]
     Route: 048
  6. PRILOSEC [Suspect]
     Route: 048
  7. PRILOSEC [Suspect]
     Route: 048
     Dates: start: 20080207
  8. PREVACID [Concomitant]
  9. SEUM [Concomitant]
  10. THEREMS-M [Concomitant]
     Route: 048
  11. ATORVASTATIN-CALCIUM [Concomitant]
     Route: 048
  12. TRIAMTERENE-HCTZ [Concomitant]
     Indication: BLOOD MAGNESIUM DECREASED
     Route: 048
  13. LISINOPRIL [Concomitant]
     Indication: ARTHRITIS
     Route: 048
  14. LISINOPRIL [Concomitant]
     Indication: PAIN
     Route: 048
  15. METOPROLOL SUCCINATE [Concomitant]
     Route: 048
  16. TYLENOL [Concomitant]
     Dates: start: 20090517
  17. PREDNISONE [Concomitant]
     Route: 048
     Dates: start: 20080702
  18. FLONASE [Concomitant]
     Dosage: EVERY MORNING
     Dates: start: 20060207
  19. TRAMADOL HCL [Concomitant]
     Route: 048
     Dates: start: 20040417
  20. CLOTRIMAZOLE-BETAMETHASONE [Concomitant]
     Dates: start: 20080815
  21. LORATADINE [Concomitant]
     Route: 048
     Dates: start: 20081120
  22. METHYLPREDNISOLONE [Concomitant]
     Route: 048
     Dates: start: 20081023
  23. CYMBALTA [Concomitant]
     Route: 048
     Dates: start: 20051215

REACTIONS (17)
  - Cervical vertebral fracture [Unknown]
  - Osteoarthritis [Unknown]
  - Pain [Unknown]
  - Bone density decreased [Unknown]
  - Osteoporosis [Unknown]
  - Androgen deficiency [Unknown]
  - Arthritis [Unknown]
  - Arthropathy [Unknown]
  - Back disorder [Unknown]
  - Calcium deficiency [Unknown]
  - Diabetes mellitus [Unknown]
  - Intervertebral disc degeneration [Unknown]
  - Muscle spasms [Unknown]
  - Abdominal pain [Unknown]
  - Limb discomfort [Unknown]
  - Vitamin D deficiency [Unknown]
  - Malaise [Unknown]
